FAERS Safety Report 4273871-X (Version None)
Quarter: 2004Q1

REPORT INFORMATION
  Report Type: 
  Country: None (occurrence: None)
  Receive Date: 20040115
  Receipt Date: 20040105
  Transmission Date: 20041129
  Serious: Yes (Death, Congenital Anomaly)
  Sender: FDA-Public Use
  Company Number: US-JNJFOC-20040100706

PATIENT
  Sex: 0

DRUGS (2)
  1. TOPAMAX [Suspect]
     Indication: MATERNAL DRUGS AFFECTING FOETUS
     Dosage: TRANSPLACENTAL
     Route: 064
  2. ZYRTEC [Concomitant]

REACTIONS (4)
  - ABORTION SPONTANEOUS [None]
  - CHROMOSOME ABNORMALITY [None]
  - COMPLICATIONS OF MATERNAL EXPOSURE TO THERAPEUTIC DRUGS [None]
  - MATERNAL DRUGS AFFECTING FOETUS [None]
